FAERS Safety Report 19139058 (Version 1)
Quarter: 2021Q2

REPORT INFORMATION
  Report Type: Spontaneous
  Country: US (occurrence: US)
  Receive Date: 20210414
  Receipt Date: 20210414
  Transmission Date: 20210717
  Serious: Yes (Other)
  Sender: FDA-Public Use
  Company Number: None

PATIENT
  Age: 73 Year
  Sex: Female

DRUGS (11)
  1. DUONEB [Concomitant]
     Active Substance: ALBUTEROL SULFATE\IPRATROPIUM BROMIDE
  2. BIOTIN [Concomitant]
     Active Substance: BIOTIN
  3. PANTOPRAZOLE [Concomitant]
     Active Substance: PANTOPRAZOLE
  4. BUMETANIDE. [Concomitant]
     Active Substance: BUMETANIDE
  5. POTASSIUM CHORIDE [Concomitant]
  6. MELATONIN [Concomitant]
     Active Substance: MELATONIN
  7. OPSUMIT [Suspect]
     Active Substance: MACITENTAN
     Indication: PULMONARY ARTERIAL HYPERTENSION
     Route: 048
     Dates: start: 20170329
  8. SOTALOL. [Concomitant]
     Active Substance: SOTALOL
  9. LEVOTHYROXINE. [Concomitant]
     Active Substance: LEVOTHYROXINE
  10. ZALEPLON. [Concomitant]
     Active Substance: ZALEPLON
  11. APIXABAN [Concomitant]
     Active Substance: APIXABAN

REACTIONS (3)
  - Nausea [None]
  - Abdominal pain upper [None]
  - Diarrhoea [None]

NARRATIVE: CASE EVENT DATE: 20210325
